FAERS Safety Report 7070549-4 (Version None)
Quarter: 2010Q4

REPORT INFORMATION
  Report Type: 
  Country: None (occurrence: None)
  Receive Date: 20101029
  Receipt Date: 20101014
  Transmission Date: 20110411
  Serious: Yes (Death, Hospitalization, Other)
  Sender: FDA-Public Use
  Company Number: FR-CELGENEUS-056-21880-08100250

PATIENT
  Age: 60 Year
  Sex: Male

DRUGS (2)
  1. REVLIMID [Suspect]
     Indication: MULTIPLE MYELOMA
     Route: 048
     Dates: start: 20070605, end: 20070723
  2. REVLIMID [Suspect]
     Route: 048
     Dates: start: 20070731, end: 20070926

REACTIONS (1)
  - OESOPHAGEAL CARCINOMA [None]
